FAERS Safety Report 11745352 (Version 1)
Quarter: 2015Q4

REPORT INFORMATION
  Report Type: Spontaneous
  Country: US (occurrence: US)
  Receive Date: 20151117
  Receipt Date: 20151117
  Transmission Date: 20160304
  Serious: No
  Sender: FDA-Public Use
  Company Number: US-B.I. PHARMACEUTICALS,INC./RIDGEFIELD-2015-BI-61778BP

PATIENT
  Age: 5 Decade
  Sex: Male

DRUGS (2)
  1. GLYXAMBI [Suspect]
     Active Substance: EMPAGLIFLOZIN\LINAGLIPTIN
     Indication: TYPE 2 DIABETES MELLITUS
     Dosage: DOSE PER APPLICATION: 25 MG/ 5 MG; DAILY DOSE: 25 MG/ 5 MG
     Route: 050
     Dates: start: 201504
  2. GLYXAMBI [Suspect]
     Active Substance: EMPAGLIFLOZIN\LINAGLIPTIN
     Dosage: DOSE REDUCED
     Route: 050
     Dates: start: 201510

REACTIONS (2)
  - Contusion [Recovered/Resolved]
  - Gingival bleeding [Recovered/Resolved]
